FAERS Safety Report 22201532 (Version 2)
Quarter: 2023Q2

REPORT INFORMATION
  Report Type: Report from Study
  Country: BR (occurrence: BR)
  Receive Date: 20230412
  Receipt Date: 20230512
  Transmission Date: 20230721
  Serious: Yes (Other)
  Sender: FDA-Public Use
  Company Number: BR-002147023-NVSC2023BR063021

PATIENT
  Age: 55 Year
  Sex: Female

DRUGS (7)
  1. KISQALI [Suspect]
     Active Substance: RIBOCICLIB
     Indication: Breast cancer metastatic
     Dosage: UNK
     Route: 065
  2. KISQALI [Suspect]
     Active Substance: RIBOCICLIB
     Indication: Breast cancer
     Dosage: 200 MG, QD (3 TABLETS PER DAY, 21 DAYS)
     Route: 048
     Dates: start: 20230124, end: 20230323
  3. SPIRONOLACTONE [Concomitant]
     Active Substance: SPIRONOLACTONE
     Indication: Cardiac disorder
     Dosage: 25 MG, QD (1 TABLET PER DAY, STARTED FROM 2 YEARS AGO UNTIL NOW)
     Route: 048
  4. SIMVASTATIN [Concomitant]
     Active Substance: SIMVASTATIN
     Indication: Cardiac disorder
     Dosage: 20 MG (HALF TABLET PER DAY, STARTED FROM 2 YEARS AGO UNTIL NOW)
     Route: 048
  5. ECASIL [Concomitant]
     Indication: Cardiac disorder
     Dosage: 81 MG, QD (1 TABLET PER DAY, STARTED FROM 2 YEARS AGO UNTIL NOW)
     Route: 048
  6. LOSARTAN POTASSIUM [Concomitant]
     Active Substance: LOSARTAN POTASSIUM
     Indication: Cardiac disorder
     Dosage: 25 MG, QD (1 TABLET PER DAY, STARTED FROM 2 YEARS AGO UNTIL NOW)
     Route: 048
  7. LETROZOLE [Concomitant]
     Active Substance: LETROZOLE
     Indication: Hormone therapy
     Dosage: 2.5 MG, QD (1 TABLET PER DAY) FIRST HALF OF DECEMBER 2023
     Route: 048

REACTIONS (11)
  - Metastases to bone [Unknown]
  - Pain in extremity [Recovering/Resolving]
  - Metastases to liver [Recovering/Resolving]
  - Metastases to lung [Recovering/Resolving]
  - Gene mutation [Unknown]
  - Injury [Unknown]
  - Oral mucosal exfoliation [Recovered/Resolved]
  - Pain [Unknown]
  - Dry mouth [Recovered/Resolved]
  - Dry skin [Unknown]
  - Drug ineffective [Unknown]

NARRATIVE: CASE EVENT DATE: 20221201
